FAERS Safety Report 7576706-2 (Version None)
Quarter: 2011Q2

REPORT INFORMATION
  Report Type: 
  Country: None (occurrence: None)
  Receive Date: 20110628
  Receipt Date: 20110620
  Transmission Date: 20111010
  Serious: Yes (Hospitalization, Other)
  Sender: FDA-Public Use
  Company Number: TW-ASTELLAS-2011JP004064

PATIENT
  Age: 39 Year
  Sex: Male

DRUGS (11)
  1. IDARUBICIN HCL [Concomitant]
     Indication: ACUTE PROMYELOCYTIC LEUKAEMIA
     Dosage: 10 MG/M2, QOD
     Route: 065
  2. METHOTREXATE [Concomitant]
     Indication: ACUTE PROMYELOCYTIC LEUKAEMIA
     Dosage: 10 MG/M2, UNKNOWN/D
     Route: 065
  3. TACROLIMUS [Suspect]
     Dosage: 0.5 MG, BID
     Route: 065
  4. PREDNISOLONE [Suspect]
     Dosage: 5 MG, BID
     Route: 065
  5. IDARUBICIN HCL [Concomitant]
     Dosage: 10 MG/M2, UNKNOWN/D
     Route: 065
  6. MYCOPHENOLATE MEFETIL [Suspect]
     Indication: IMMUNOSUPPRESSANT DRUG THERAPY
     Dosage: 500 MG, BID
     Route: 065
  7. PREDNISOLONE [Suspect]
     Indication: IMMUNOSUPPRESSANT DRUG THERAPY
     Dosage: 5 MG, UNKNOWN/D
     Route: 065
  8. TRETINOIN [Concomitant]
     Indication: ACUTE PROMYELOCYTIC LEUKAEMIA
     Dosage: 70 MG, UNKNOWN/D
     Route: 065
  9. CYTARABINE [Concomitant]
     Indication: ACUTE PROMYELOCYTIC LEUKAEMIA
     Dosage: 155 MG, UNKNOWN/D
     Route: 065
  10. TACROLIMUS [Suspect]
     Indication: IMMUNOSUPPRESSANT DRUG THERAPY
     Dosage: 1.5 MG, BID
     Route: 065
  11. PREDNISOLONE [Suspect]
     Dosage: 5 MG, UNKNOWN/D
     Route: 065

REACTIONS (3)
  - PNEUMONIA [None]
  - SEPTIC SHOCK [None]
  - ACUTE PROMYELOCYTIC LEUKAEMIA [None]
